FAERS Safety Report 6432728-6 (Version None)
Quarter: 2009Q4

REPORT INFORMATION
  Report Type: 
  Country: None (occurrence: None)
  Receive Date: 20091109
  Receipt Date: 20091029
  Transmission Date: 20100525
  Serious: Yes (Other)
  Sender: FDA-Public Use
  Company Number: US-JNJFOC-20091100174

PATIENT
  Sex: Female
  Weight: 127.01 kg

DRUGS (5)
  1. ULTRAM ER [Suspect]
     Indication: PAIN
     Route: 048
     Dates: start: 20091002
  2. ZANAFLEX [Concomitant]
  3. SIMVASTATIN [Concomitant]
  4. VIVELLE-DOT [Concomitant]
  5. PROMETRIUM [Concomitant]

REACTIONS (1)
  - BLOOD PROLACTIN INCREASED [None]
